FAERS Safety Report 24568391 (Version 5)
Quarter: 2024Q4

REPORT INFORMATION
  Report Type: Report from Study
  Country: AR (occurrence: AR)
  Receive Date: 20241031
  Receipt Date: 20241118
  Transmission Date: 20250114
  Serious: Yes (Hospitalization, Other)
  Sender: AKCEA THERAPEUTICS
  Company Number: AR-AKCEA THERAPEUTICS, INC.-2024IS006951

PATIENT

DRUGS (5)
  1. TEGSEDI [Suspect]
     Active Substance: INOTERSEN SODIUM
     Indication: Hereditary neuropathic amyloidosis
     Dosage: 284 MILLIGRAM, QW
     Route: 058
     Dates: start: 20241023, end: 20241023
  2. TEGSEDI [Suspect]
     Active Substance: INOTERSEN SODIUM
     Dosage: 284 MILLIGRAM, QW
     Route: 058
     Dates: start: 20231109
  3. LOTRIAL [ENALAPRILAT] [Concomitant]
     Indication: Product used for unknown indication
     Dosage: 10 MILLIGRAM
     Route: 065
  4. DULOXETINE HYDROCHLORIDE [Concomitant]
     Active Substance: DULOXETINE HYDROCHLORIDE
     Indication: Product used for unknown indication
     Dosage: 60 MILLIGRAM
     Route: 065
  5. CARBAMAZEPINE [Concomitant]
     Active Substance: CARBAMAZEPINE
     Indication: Product used for unknown indication
     Dosage: 200 MILLIGRAM
     Route: 065

REACTIONS (7)
  - Dysphagia [Not Recovered/Not Resolved]
  - Aphasia [Not Recovered/Not Resolved]
  - Cerebrovascular disorder [Not Recovered/Not Resolved]
  - Depressed mood [Not Recovered/Not Resolved]
  - Insomnia [Not Recovered/Not Resolved]
  - Gait disturbance [Not Recovered/Not Resolved]
  - Illness [Not Recovered/Not Resolved]

NARRATIVE: CASE EVENT DATE: 20241023
